FAERS Safety Report 6449026-7 (Version None)
Quarter: 2009Q4

REPORT INFORMATION
  Report Type: 
  Country: None (occurrence: None)
  Receive Date: 20091120
  Receipt Date: 20091112
  Transmission Date: 20100525
  Serious: Yes (Hospitalization)
  Sender: FDA-Public Use
  Company Number: B0603613A

PATIENT
  Age: 11 Month
  Sex: Male
  Weight: 8 kg

DRUGS (9)
  1. LANVIS [Suspect]
     Dosage: 20MG PER DAY
     Route: 048
     Dates: start: 20080731, end: 20080828
  2. VINCRISTINE [Suspect]
     Dosage: 400MCG WEEKLY
     Route: 042
     Dates: start: 20080731, end: 20080821
  3. CERUBIDINE [Suspect]
     Dosage: 8500MCG WEEKLY
     Route: 042
     Dates: start: 20080731, end: 20080821
  4. CYTARABINE [Suspect]
     Dosage: 21MG PER DAY
     Route: 042
     Dates: start: 20080801, end: 20080825
  5. KIDROLASE [Suspect]
     Dosage: 678IU SINGLE DOSE
     Route: 042
     Dates: start: 20080731, end: 20080731
  6. CYTARABINE [Suspect]
     Dosage: 15MG SINGLE DOSE
     Route: 037
     Dates: start: 20080731, end: 20080731
  7. ENDOXAN [Concomitant]
     Dosage: 140MG UNKNOWN
     Route: 042
     Dates: start: 20080904, end: 20080914
  8. METHYLPREDNISOLONE 4MG TAB [Concomitant]
     Route: 037
  9. DEXAMETHASONE [Concomitant]
     Route: 042

REACTIONS (2)
  - BLOOD CULTURE POSITIVE [None]
  - BONE MARROW FAILURE [None]
